FAERS Safety Report 4818029-8 (Version None)
Quarter: 2005Q4

REPORT INFORMATION
  Report Type: 
  Country: None (occurrence: None)
  Receive Date: 20051102
  Receipt Date: 20051021
  Transmission Date: 20060501
  Serious: Yes (Hospitalization)
  Sender: FDA-Public Use
  Company Number: FR-BRISTOL-MYERS SQUIBB COMPANY-13153622

PATIENT
  Age: 66 Year
  Sex: Male

DRUGS (2)
  1. VINFLUNINE IV [Suspect]
     Indication: NON-SMALL CELL LUNG CANCER
     Dosage: REC'D 620 MG. THERAPY START DATE 28-APR-03. DELAYED + DOSE REDUCED.
     Route: 042
     Dates: start: 20030518, end: 20030518
  2. CISPLATIN [Suspect]
     Indication: NON-SMALL CELL LUNG CANCER
     Dosage: GIVEN DAY 1 EVERY 3 WEEKS. THERAPY START DATE 28-APR-05. DELAYED.
     Route: 042
     Dates: start: 20030518, end: 20030518

REACTIONS (2)
  - ABDOMINAL PAIN [None]
  - FEBRILE NEUTROPENIA [None]
